FAERS Safety Report 8372024-3 (Version None)
Quarter: 2012Q2

REPORT INFORMATION
  Report Type: 
  Country: None (occurrence: None)
  Receive Date: 20120518
  Receipt Date: 20120503
  Transmission Date: 20120825
  Serious: Yes (Other)
  Sender: FDA-Public Use
  Company Number: DE-TEVA-333776GER

PATIENT
  Sex: Female
  Weight: 59 kg

DRUGS (8)
  1. TRASTUZUMAB [Suspect]
     Indication: BREAST CANCER
     Route: 042
     Dates: start: 20111129
  2. LAPATINIB [Suspect]
     Indication: BREAST CANCER
     Dosage: 750 MILLIGRAM;
     Route: 048
     Dates: start: 20111129
  3. PACLITAXEL [Suspect]
     Indication: BREAST CANCER
     Route: 042
     Dates: start: 20111129, end: 20120320
  4. CARBOPLATIN [Suspect]
     Route: 042
     Dates: start: 20120327
  5. PACLITAXEL [Suspect]
     Route: 042
     Dates: start: 20120327
  6. CARBOPLATIN [Suspect]
     Indication: BREAST CANCER
     Route: 042
     Dates: start: 20111129, end: 20120320
  7. DOXORUBICIN HCL [Suspect]
     Indication: BREAST CANCER
     Route: 042
     Dates: start: 20111129, end: 20120320
  8. DOXORUBICIN HCL [Suspect]
     Route: 042
     Dates: start: 20120327

REACTIONS (2)
  - SUBCUTANEOUS ABSCESS [None]
  - WOUND COMPLICATION [None]
